FAERS Safety Report 6517694-7 (Version None)
Quarter: 2009Q4

REPORT INFORMATION
  Report Type: 
  Country: None (occurrence: None)
  Receive Date: 20091224
  Receipt Date: 20091221
  Transmission Date: 20100525
  Serious: Yes (Hospitalization, Other)
  Sender: FDA-Public Use
  Company Number: BE-SANOFI-AVENTIS-2009SA009636

PATIENT
  Age: 59 Year
  Sex: Male

DRUGS (2)
  1. LEFLUNOMIDE [Suspect]
     Route: 048
  2. METHOTREXATE [Suspect]

REACTIONS (5)
  - ALANINE AMINOTRANSFERASE INCREASED [None]
  - ASPARTATE AMINOTRANSFERASE INCREASED [None]
  - BONE MARROW FAILURE [None]
  - HEPATOTOXICITY [None]
  - THROMBOCYTOPENIA [None]
